FAERS Safety Report 6804474-8 (Version None)
Quarter: 2010Q2

REPORT INFORMATION
  Report Type: 
  Country: None (occurrence: None)
  Receive Date: 20100628
  Receipt Date: 20070323
  Transmission Date: 20101027
  Serious: Yes (Other)
  Sender: FDA-Public Use
  Company Number: US-PFIZER INC-2007024049

PATIENT

DRUGS (2)
  1. GEODON [Suspect]
  2. TRAZODONE HYDROCHLORIDE [Suspect]

REACTIONS (2)
  - AGITATION [None]
  - SEROTONIN SYNDROME [None]
